FAERS Safety Report 8902945 (Version 1)
Quarter: 2012Q4

REPORT INFORMATION
  Report Type: 
  Country: US (occurrence: US)
  Receive Date: 20121112
  Receipt Date: 20121112
  Transmission Date: 20130627
  Serious: No
  Sender: FDA-Public Use
  Company Number: US-BIOGENIDEC-2012BI050197

PATIENT
  Age: 40 Year
  Sex: Female

DRUGS (4)
  1. TYSABRI [Suspect]
     Indication: MULTIPLE SCLEROSIS
     Route: 042
     Dates: start: 20120518
  2. RAMIPRIL [Concomitant]
     Indication: HYPERTENSION
     Dates: start: 201208, end: 20121023
  3. AMLODIPINE [Concomitant]
     Indication: HYPERTENSION
     Dates: start: 20121023
  4. METOPROLOL [Concomitant]
     Indication: HYPERTENSION
     Dates: start: 20121023

REACTIONS (3)
  - Headache [Recovered/Resolved]
  - Feeling abnormal [Recovered/Resolved]
  - Hypertension [Recovered/Resolved]
